FAERS Safety Report 6118240-2 (Version None)
Quarter: 2009Q1

REPORT INFORMATION
  Report Type: 
  Country: None (occurrence: None)
  Receive Date: 20090314
  Receipt Date: 20090212
  Transmission Date: 20090719
  Serious: Yes (Hospitalization)
  Sender: FDA-Public Use
  Company Number: US-ABBOTT-09P-163-0503039-00

PATIENT
  Sex: Male
  Weight: 116.22 kg

DRUGS (2)
  1. HUMIRA [Suspect]
     Indication: CROHN'S DISEASE
     Route: 058
     Dates: start: 20070816, end: 20090101
  2. LIALDA [Concomitant]
     Indication: CROHN'S DISEASE
     Dates: end: 20090212

REACTIONS (1)
  - CROHN'S DISEASE [None]
